FAERS Safety Report 15660408 (Version 1)
Quarter: 2018Q4

REPORT INFORMATION
  Report Type: Spontaneous
  Country: HU (occurrence: HU)
  Receive Date: 20181127
  Receipt Date: 20181127
  Transmission Date: 20190205
  Serious: Yes (Other)
  Sender: FDA-Public Use
  Company Number: HU-AMGEN-HUNSP2018166783

PATIENT
  Age: 41 Year
  Sex: Male

DRUGS (10)
  1. BLINCYTO [Suspect]
     Active Substance: BLINATUMOMAB
     Indication: ACUTE LYMPHOCYTIC LEUKAEMIA
     Dosage: UNK (ONE CYCLE)
     Route: 042
     Dates: start: 20180123, end: 20180227
  2. BLINCYTO [Suspect]
     Active Substance: BLINATUMOMAB
     Dosage: UNK (CYCLE III)
     Route: 042
     Dates: start: 20180522, end: 20180620
  3. BLINCYTO [Suspect]
     Active Substance: BLINATUMOMAB
     Dosage: UNK (CYCLE II)
     Route: 042
     Dates: start: 20180319, end: 20180417
  4. NIVESTIM [Concomitant]
     Active Substance: FILGRASTIM
     Dosage: UNK
     Route: 058
     Dates: start: 20180312
  5. BLINCYTO [Suspect]
     Active Substance: BLINATUMOMAB
     Dosage: UNK (CYCLE FOURTH)
     Route: 042
     Dates: start: 20180709, end: 20180807
  6. BLINCYTO [Suspect]
     Active Substance: BLINATUMOMAB
     Dosage: UNK
     Route: 042
     Dates: start: 2018
  7. SUMETROLIM [Concomitant]
     Active Substance: SULFAMETHOXAZOLE\TRIMETHOPRIM
     Dosage: 1 DF, BID (1 TABLET)
  8. MILURIT [Concomitant]
     Active Substance: ALLOPURINOL
     Dosage: 100 MG, QD
  9. TELVIRAN [Concomitant]
     Dosage: 400 MG, BID
  10. PANTOPRAZOL [Concomitant]
     Active Substance: PANTOPRAZOLE SODIUM
     Dosage: 40 MG, (IN THE EVENING)

REACTIONS (5)
  - Pyrexia [Unknown]
  - Cholelithiasis [Unknown]
  - Nasal polyps [Unknown]
  - Tremor [Unknown]
  - Conjunctivitis [Unknown]

NARRATIVE: CASE EVENT DATE: 2018
